FAERS Safety Report 9406950 (Version 1)
Quarter: 2013Q3

REPORT INFORMATION
  Report Type: Spontaneous
  Country: US (occurrence: US)
  Receive Date: 20130718
  Receipt Date: 20130718
  Transmission Date: 20140515
  Serious: No
  Sender: FDA-Public Use
  Company Number: US-PFIZER INC-2013207798

PATIENT
  Age: 55 Year
  Sex: Female

DRUGS (3)
  1. VENLAFAXINE HCL [Suspect]
     Dosage: 37.5 MG, UNK
  2. TRAMADOL HCL [Suspect]
     Dosage: 4 TABS DALLY
  3. TYLENOL ARTHRITIS [Suspect]
     Dosage: UNK, BID

REACTIONS (1)
  - Drug effect incomplete [Unknown]
